FAERS Safety Report 8003821-1 (Version None)
Quarter: 2011Q4

REPORT INFORMATION
  Report Type: 
  Country: None (occurrence: None)
  Receive Date: 20111222
  Receipt Date: 20111219
  Transmission Date: 20120403
  Serious: Yes (Death)
  Sender: FDA-Public Use
  Company Number: US-PFIZER INC-2011309964

PATIENT
  Age: 68 Year
  Sex: Female

DRUGS (5)
  1. AMLODIPINE BESYLATE [Suspect]
     Dosage: UNK
     Route: 048
  2. ACETAMINOPHEN [Suspect]
     Dosage: UNK
     Route: 048
  3. PAROXETINE HCL [Suspect]
     Dosage: UNK
     Route: 048
  4. ESZOPICLONE [Suspect]
     Dosage: UNK
     Route: 048
  5. LORAZEPAM [Suspect]
     Dosage: UNK
     Route: 048

REACTIONS (3)
  - COMPLETED SUICIDE [None]
  - CARDIAC ARREST [None]
  - RESPIRATORY ARREST [None]
